FAERS Safety Report 20096836 (Version 1)
Quarter: 2021Q4

REPORT INFORMATION
  Report Type: Other
  Country: US (occurrence: None)
  Receive Date: 20211122
  Receipt Date: 20211122
  Transmission Date: 20220303
  Serious: Yes (Other)
  Sender: FDA-Public Use
  Company Number: US-ROCHE-2955096

PATIENT
  Age: 39 Year
  Sex: Female
  Weight: 48.578 kg

DRUGS (2)
  1. OCREVUS [Suspect]
     Active Substance: OCRELIZUMAB
     Indication: Relapsing multiple sclerosis
     Dosage: EVERY 2 WEEKS THEN 600 MG EVERY 6 MONTHS/ ONCE IN EVERY 24 WEEKS
     Route: 042
     Dates: start: 20200609, end: 202012
  2. IBUPROFEN [Concomitant]
     Active Substance: IBUPROFEN
     Dosage: YES
     Route: 048
     Dates: start: 2004

REACTIONS (7)
  - Abscess [Recovered/Resolved with Sequelae]
  - Eye infection [Recovered/Resolved]
  - Hordeolum [Recovered/Resolved]
  - Rash [Recovered/Resolved]
  - Pruritus [Not Recovered/Not Resolved]
  - Erythema [Not Recovered/Not Resolved]
  - Swelling [Recovered/Resolved]

NARRATIVE: CASE EVENT DATE: 20210101
